FAERS Safety Report 19698352 (Version 1)
Quarter: 2021Q3

REPORT INFORMATION
  Report Type: Spontaneous
  Country: US (occurrence: US)
  Receive Date: 20210813
  Receipt Date: 20210813
  Transmission Date: 20211014
  Serious: Yes (Life-Threatening, Hospitalization)
  Sender: FDA-Public Use
  Company Number: None

PATIENT
  Age: 62 Year
  Sex: Male
  Weight: 124 kg

DRUGS (12)
  1. JARDIANCE [Concomitant]
     Active Substance: EMPAGLIFLOZIN
  2. FENOFIBRATE (LOFIBRA) [Concomitant]
  3. ZESTRIL [Concomitant]
     Active Substance: LISINOPRIL
  4. METFORMIN (GLUCOPHAGE) [Concomitant]
  5. INSULIN NPH ISOPH U?100 HUMAN (HUMULIN N NPH INSULIN KWIKPEN) [Concomitant]
  6. INSULIN LISPRO (HUMALOG KWIKPEN INSULIN) [Concomitant]
  7. TRULICITY [Suspect]
     Active Substance: DULAGLUTIDE
     Indication: TYPE 2 DIABETES MELLITUS
     Dosage: ?          QUANTITY:1 INJECTION(S);OTHER FREQUENCY:1/WEEK;?
     Route: 058
     Dates: start: 20190801, end: 20210807
  8. ASPIRIN. [Concomitant]
     Active Substance: ASPIRIN
  9. MULTIVITAMIN [Concomitant]
     Active Substance: VITAMINS
  10. LIPITOR [Concomitant]
     Active Substance: ATORVASTATIN CALCIUM
  11. OMEGA?3 ACID ETHYL ESTERS (LOVAZA) [Concomitant]
  12. CHLORTHALIDONE (HYGROTEN) [Concomitant]

REACTIONS (2)
  - Abdominal pain [None]
  - Adverse drug reaction [None]

NARRATIVE: CASE EVENT DATE: 20210807
